FAERS Safety Report 18145504 (Version 3)
Quarter: 2021Q1

REPORT INFORMATION
  Report Type: Report from Study
  Country: US (occurrence: US)
  Receive Date: 20200813
  Receipt Date: 20210309
  Transmission Date: 20210419
  Serious: Yes (Death, Hospitalization)
  Sender: FDA-Public Use
  Company Number: US-ROCHE-2575936

PATIENT
  Age: 60 Year
  Sex: Female
  Weight: 64.5 kg

DRUGS (24)
  1. IMPRIME PGG (IMMUNOSTIMULANTS) [Suspect]
     Active Substance: INVESTIGATIONAL PRODUCT
     Indication: COLORECTAL CANCER METASTATIC
     Dosage: DOSE OF LAST STUDY DRUG 1B ADMINISTERED PRIOR TO AE ONSET: 264.4 EVERY WEEK.?DATE OF MOST RECENT DOS
     Route: 042
     Dates: start: 20190916
  2. PSYLLIUM SEEDS [Concomitant]
     Dates: start: 20180211
  3. TURMERIC [Concomitant]
     Active Substance: HERBALS\TURMERIC
     Dates: start: 20180717
  4. HYDROMORPHONE [Concomitant]
     Active Substance: HYDROMORPHONE
     Indication: PAIN
     Route: 048
     Dates: start: 20200326, end: 20200413
  5. LOPERAMIDE [Concomitant]
     Active Substance: LOPERAMIDE
     Indication: DIARRHOEA
     Dosage: AS NEEDED.
     Route: 048
     Dates: start: 20200219
  6. CAPOTEN [Concomitant]
     Active Substance: CAPTOPRIL
     Indication: HYPERTENSION
     Route: 048
     Dates: start: 20200330, end: 20200330
  7. ONDANSETRON [Concomitant]
     Active Substance: ONDANSETRON
     Indication: NAUSEA
     Dates: start: 20190211
  8. ATEZOLIZUMAB. [Suspect]
     Active Substance: ATEZOLIZUMAB
     Indication: COLORECTAL CANCER METASTATIC
     Dosage: DOSE OF LAST STUDY DRUG 1A ADMINISTERED PRIOR TO AE ONSET: 1200 EVERY 3 WEEK AT ?DATE OF MOST RECENT
     Route: 042
     Dates: start: 20190916
  9. BEVACIZUMAB. [Suspect]
     Active Substance: BEVACIZUMAB
     Indication: COLORECTAL CANCER METASTATIC
     Dosage: DOSE OF LAST STUDY DRUG 1C ADMINISTERED PRIOR TO AE ONSET: 526 EVERY 3 WEEK.?DATE OF MOST RECENT DOS
     Route: 042
     Dates: start: 20190916
  10. CIPROFLOXACIN. [Concomitant]
     Active Substance: CIPROFLOXACIN
     Indication: INFECTION
     Route: 048
     Dates: start: 20200331, end: 20200409
  11. IMODIUM [Concomitant]
     Active Substance: LOPERAMIDE HYDROCHLORIDE
     Indication: DIARRHOEA
     Dosage: AS NEEDED.
     Route: 048
     Dates: start: 20191021
  12. ADVIL [Concomitant]
     Active Substance: IBUPROFEN
     Indication: HEADACHE
     Route: 048
     Dates: start: 20190930
  13. CEFEPIME [Concomitant]
     Active Substance: CEFEPIME HYDROCHLORIDE
     Indication: INFECTION
     Route: 042
     Dates: start: 20200326, end: 20200330
  14. ONDANSETRON [Concomitant]
     Active Substance: ONDANSETRON
     Indication: VOMITING
     Route: 048
     Dates: start: 20190916
  15. ASCORBIC ACID. [Concomitant]
     Active Substance: ASCORBIC ACID
     Route: 048
     Dates: start: 20181211
  16. TYLENOL [Concomitant]
     Active Substance: ACETAMINOPHEN
     Indication: PAIN
     Dosage: AS NEEDED
     Route: 048
  17. LORAZEPAM. [Concomitant]
     Active Substance: LORAZEPAM
     Indication: NAUSEA
     Dosage: AS NEEDED
     Route: 048
     Dates: start: 20191017
  18. LISINOPRIL. [Concomitant]
     Active Substance: LISINOPRIL
     Indication: HYPERTENSION
     Route: 048
     Dates: start: 20191125
  19. COLACE [Concomitant]
     Active Substance: DOCUSATE SODIUM
     Indication: CONSTIPATION
     Dosage: AS NEEDED.
     Route: 065
     Dates: start: 20190930
  20. FAMOTIDINE. [Concomitant]
     Active Substance: FAMOTIDINE
     Indication: DYSPEPSIA
     Route: 048
     Dates: start: 20200323
  21. METRONIDAZOLE. [Concomitant]
     Active Substance: METRONIDAZOLE
     Indication: INFECTION
     Route: 048
     Dates: start: 20200330, end: 20200331
  22. PIPERACILLIN. [Concomitant]
     Active Substance: PIPERACILLIN SODIUM
     Indication: INFECTION
     Route: 042
     Dates: start: 20200326, end: 20200326
  23. CHOLECALCIFEROL [Concomitant]
     Active Substance: CHOLECALCIFEROL
     Dates: start: 20190119
  24. LIDODERM [Concomitant]
     Active Substance: LIDOCAINE
     Indication: PAIN
     Dosage: AS NEENED.
     Route: 062

REACTIONS (2)
  - Enterocolitis [Recovered/Resolved]
  - Perforation [Recovered/Resolved]

NARRATIVE: CASE EVENT DATE: 20200325
